FAERS Safety Report 10882602 (Version 1)
Quarter: 2015Q1

REPORT INFORMATION
  Report Type: Report from Study
  Country: KR (occurrence: KR)
  Receive Date: 20150303
  Receipt Date: 20150303
  Transmission Date: 20150721
  Serious: Yes (Hospitalization)
  Sender: FDA-Public Use
  Company Number: KR-EISAI MEDICAL RESEARCH-E7389-04180-CLI-KR

PATIENT
  Age: 43 Year
  Sex: Female
  Weight: 68 kg

DRUGS (13)
  1. HALAVEN [Suspect]
     Active Substance: ERIBULIN MESYLATE
     Indication: BREAST CANCER METASTATIC
     Route: 041
     Dates: start: 20130701, end: 20130819
  2. OXYCODONE/NALOXONE [Concomitant]
     Dosage: (20/10 MG)
     Route: 048
     Dates: start: 20130709
  3. TRIAMCINOLONE [Concomitant]
     Active Substance: TRIAMCINOLONE
     Indication: PERIARTHRITIS
     Route: 030
     Dates: start: 20130819, end: 20130819
  4. FILGRASTIM [Concomitant]
     Active Substance: FILGRASTIM
     Indication: NEUTROPHIL COUNT DECREASED
     Route: 058
     Dates: start: 20130625, end: 20130625
  5. OXYCODONE [Concomitant]
     Active Substance: OXYCODONE
     Indication: LYMPH NODE PAIN
     Route: 048
     Dates: start: 20130422, end: 20130708
  6. FILGRASTIM [Concomitant]
     Active Substance: FILGRASTIM
     Route: 058
     Dates: start: 20130715, end: 20130715
  7. FILGRASTIM [Concomitant]
     Active Substance: FILGRASTIM
     Route: 058
     Dates: start: 20130806, end: 20130806
  8. VITIS VINIFERA EXTRACT [Concomitant]
     Indication: LYMPHOEDEMA
     Route: 048
     Dates: start: 20130716
  9. OXYCODONE/NALOXONE [Concomitant]
     Indication: LYMPH NODE PAIN
     Dosage: (10/5 MG)
     Route: 048
     Dates: start: 20130513
  10. BISACODYL. [Concomitant]
     Active Substance: BISACODYL
     Indication: CONSTIPATION
     Route: 048
     Dates: start: 20130216
  11. HALAVEN [Suspect]
     Active Substance: ERIBULIN MESYLATE
     Route: 041
     Dates: start: 20130902
  12. OXYCODONE [Concomitant]
     Active Substance: OXYCODONE
     Route: 048
     Dates: start: 20130709
  13. FILGRASTIM [Concomitant]
     Active Substance: FILGRASTIM
     Route: 058
     Dates: start: 20130828, end: 20130828

REACTIONS (1)
  - Pyrexia [Recovered/Resolved]

NARRATIVE: CASE EVENT DATE: 20130904
